FAERS Safety Report 17101211 (Version 5)
Quarter: 2020Q1

REPORT INFORMATION
  Report Type: Report from Study
  Country: KR (occurrence: KR)
  Receive Date: 20191202
  Receipt Date: 20200106
  Transmission Date: 20200409
  Serious: Yes (Death, Hospitalization)
  Sender: FDA-Public Use
  Company Number: KR-CELGENEUS-KOR-20191109650

PATIENT
  Age: 59 Year
  Sex: Male

DRUGS (16)
  1. CHLORPHENIRAMINE MALEATE. [Concomitant]
     Active Substance: CHLORPHENIRAMINE MALEATE
     Indication: PROPHYLAXIS
     Route: 041
     Dates: start: 20190723, end: 20190723
  2. POMALYST [Suspect]
     Active Substance: POMALIDOMIDE
     Dosage: 2 MILLIGRAM
     Route: 048
     Dates: start: 20190723, end: 20190809
  3. SPIROZIDE [Concomitant]
     Indication: ACUTE HEPATITIS B
     Route: 048
     Dates: start: 20190731, end: 20190815
  4. TORSEM [Concomitant]
     Indication: HYPERTENSION
     Dosage: 5 MILLIGRAM
     Route: 048
     Dates: start: 20170308, end: 20190829
  5. GRASIN [Concomitant]
     Indication: PROPHYLAXIS
     Dosage: 300 MICROGRAM
     Route: 058
     Dates: start: 20190811, end: 20190815
  6. VENTOLIN [Concomitant]
     Active Substance: ALBUTEROL SULFATE
     Indication: PRODUCT USED FOR UNKNOWN INDICATION
     Dosage: 60 MILLILITER
     Route: 055
     Dates: start: 20190818, end: 20190829
  7. BARACLE [Concomitant]
     Indication: ACUTE HEPATITIS B
     Dosage: .5 MILLIGRAM
     Route: 048
     Dates: start: 20190520, end: 20190829
  8. URSA [Concomitant]
     Active Substance: URSODIOL
     Indication: ACUTE HEPATITIS B
     Dosage: 600 MILLIGRAM
     Route: 048
     Dates: start: 20190516, end: 20190829
  9. CHLORPHENIRAMINE MALEATE. [Concomitant]
     Active Substance: CHLORPHENIRAMINE MALEATE
     Route: 041
     Dates: start: 20190807, end: 20190807
  10. ELIQUIS [Concomitant]
     Active Substance: APIXABAN
     Indication: HYPERTENSION
     Dosage: 2.5 MILLIGRAM
     Route: 048
     Dates: start: 20180126, end: 20190824
  11. HERBEN [Concomitant]
     Active Substance: DILTIAZEM HYDROCHLORIDE
     Indication: HYPERTENSION
     Route: 048
     Dates: start: 20170906, end: 20190829
  12. LASIX [Concomitant]
     Active Substance: FUROSEMIDE
     Indication: ACUTE KIDNEY INJURY
     Route: 041
     Dates: start: 20190811, end: 20190829
  13. CONCOR [Concomitant]
     Active Substance: BISOPROLOL FUMARATE
     Indication: HYPERTENSION
     Dosage: 2.5 MILLIGRAM
     Route: 048
     Dates: start: 20170219, end: 20190829
  14. NITROLINGUAL [Concomitant]
     Active Substance: NITROGLYCERIN
     Indication: ACUTE KIDNEY INJURY
     Dosage: 50 MILLIGRAM
     Route: 041
     Dates: start: 20190813, end: 20190813
  15. POMALYST [Suspect]
     Active Substance: POMALIDOMIDE
     Indication: PLASMA CELL MYELOMA
     Dosage: 2 MILLIGRAM
     Route: 048
     Dates: start: 20190626, end: 20190716
  16. APETROL ES [Concomitant]
     Indication: PROPHYLAXIS
     Route: 048
     Dates: start: 20190723, end: 20190805

REACTIONS (2)
  - Acute kidney injury [Fatal]
  - Pneumonia [Fatal]

NARRATIVE: CASE EVENT DATE: 20190810
